FAERS Safety Report 4615702-1 (Version None)
Quarter: 2005Q1

REPORT INFORMATION
  Report Type: 
  Country: None (occurrence: None)
  Receive Date: 20050317
  Receipt Date: 20050302
  Transmission Date: 20050727
  Serious: Yes (Hospitalization, Other)
  Sender: FDA-Public Use
  Company Number: 2005BI004726

PATIENT
  Age: 39 Year
  Sex: Female
  Weight: 122.4712 kg

DRUGS (3)
  1. AVONEX [Suspect]
     Indication: MULTIPLE SCLEROSIS
     Dosage: 30 UG; QW; IM
     Route: 030
     Dates: start: 20020101, end: 20030101
  2. AVONEX [Suspect]
     Indication: MULTIPLE SCLEROSIS
     Dosage: 30 UG; QW; IM
     Route: 031
     Dates: start: 20030101
  3. TOPAMAX [Concomitant]

REACTIONS (16)
  - CONVULSION [None]
  - DEPRESSION [None]
  - ERYTHEMA [None]
  - HEADACHE [None]
  - HEMIPARESIS [None]
  - INFLUENZA LIKE ILLNESS [None]
  - NERVE INJURY [None]
  - OVARIAN GRANULOSA-THECA CELL TUMOUR [None]
  - PARALYSIS [None]
  - POST PROCEDURAL COMPLICATION [None]
  - POST PROCEDURAL PAIN [None]
  - SKIN DISCOLOURATION [None]
  - STRESS [None]
  - TREMOR [None]
  - UTERINE CANCER [None]
  - WEIGHT INCREASED [None]
